FAERS Safety Report 8891634 (Version 1)
Quarter: 2012Q4

REPORT INFORMATION
  Report Type: 
  Country: US (occurrence: US)
  Receive Date: 20121107
  Receipt Date: 20121107
  Transmission Date: 20130627
  Serious: No
  Sender: FDA-Public Use
  Company Number: US-AMGEN-USASP2011048529

PATIENT
  Sex: Female

DRUGS (10)
  1. ENBREL [Suspect]
     Indication: PRODUCT USED FOR UNKNOWN INDICATION
     Dosage: 25 mg, 2 times/wk
  2. CARDIZEM [Concomitant]
     Dosage: 30 mg, UNK
     Route: 048
  3. FOLIC ACID [Concomitant]
     Dosage: 1 mg, UNK
     Route: 048
  4. VITAMIN D NOS [Concomitant]
     Dosage: 400 IU, UNK
     Route: 048
  5. VITAMIN E [Concomitant]
     Dosage: 1000 IU, UNK
     Route: 048
  6. IRON [Concomitant]
     Dosage: 18 mg, UNK
  7. FISH OIL [Concomitant]
     Dosage: UNK
     Route: 048
  8. CALCIUM [Concomitant]
     Dosage: 500 UNK, UNK
  9. VITAMIN A [Concomitant]
     Route: 048
  10. METHOTREXATE [Concomitant]
     Dosage: 20 mg, UNK
     Route: 058

REACTIONS (1)
  - Rash [Unknown]
